FAERS Safety Report 6303940-1 (Version None)
Quarter: 2009Q3

REPORT INFORMATION
  Report Type: 
  Country: None (occurrence: None)
  Receive Date: 20090810
  Receipt Date: 20090810
  Transmission Date: 20100115
  Serious: No
  Sender: FDA-Public Use
  Company Number: None

PATIENT
  Age: 49 Year
  Sex: Male
  Weight: 104.3273 kg

DRUGS (1)
  1. EXFORGE [Suspect]
     Indication: HYPERTENSION
     Dates: start: 20080101, end: 20090808

REACTIONS (6)
  - ARRHYTHMIA [None]
  - DYSPNOEA [None]
  - NO THERAPEUTIC RESPONSE [None]
  - OEDEMA PERIPHERAL [None]
  - PRURITUS GENERALISED [None]
  - WEIGHT INCREASED [None]
